FAERS Safety Report 15216764 (Version 4)
Quarter: 2019Q1

REPORT INFORMATION
  Report Type: Spontaneous
  Country: BR (occurrence: BR)
  Receive Date: 20180730
  Receipt Date: 20190104
  Transmission Date: 20190417
  Serious: Yes (Other)
  Sender: FDA-Public Use
  Company Number: BR-GEHC-2018CSU002928

PATIENT

DRUGS (10)
  1. HEPARIN SODIUM. [Concomitant]
     Active Substance: HEPARIN SODIUM
     Dosage: 10000 IU, SINGLE
     Route: 042
     Dates: start: 20180712, end: 20180712
  2. LIDOCAINE. [Concomitant]
     Active Substance: LIDOCAINE
     Dosage: 1 BOTTLE (UNIT DOSE NOT PROVIDED)
  3. XYLOCAINE PLAIN [Concomitant]
     Dosage: 20 ML, SINGLE
     Dates: start: 20180712, end: 20180712
  4. ONDANSETRON [Concomitant]
     Active Substance: ONDANSETRON
     Dosage: 8 MG, UNK
     Dates: start: 20180712, end: 20180712
  5. VISIPAQUE [Suspect]
     Active Substance: IODIXANOL
     Indication: ACUTE MYOCARDIAL INFARCTION
     Dosage: 400 ML, SINGLE
     Route: 013
     Dates: start: 20180712, end: 20180712
  6. SALINE                             /00075401/ [Concomitant]
     Active Substance: SODIUM CHLORIDE
     Dosage: 1000 ML, SINGLE
     Dates: start: 20180712, end: 20180712
  7. REOPRO [Concomitant]
     Active Substance: ABCIXIMAB
     Dosage: 30 MG, UNK
     Dates: start: 20180712, end: 20180712
  8. NITROGLYCERIN. [Concomitant]
     Active Substance: NITROGLYCERIN
     Dosage: 50 MG, UNK
     Dates: start: 20180712, end: 20180712
  9. HEXABRIX [Suspect]
     Active Substance: IOXAGLATE MEGLUMINE\IOXAGLATE SODIUM
     Indication: ACUTE MYOCARDIAL INFARCTION
     Dosage: 50 ML, SINGLE
     Route: 065
     Dates: start: 20180712, end: 20180712
  10. TRIDIL                             /00003201/ [Concomitant]
     Dosage: 1 AMPOULE (UNIT DOSE NOT PROVIDED)

REACTIONS (3)
  - Flushing [Recovered/Resolved]
  - Petechiae [Recovered/Resolved]
  - Incorrect dose administered [Recovered/Resolved]

NARRATIVE: CASE EVENT DATE: 20180712
